FAERS Safety Report 11572197 (Version 1)
Quarter: 2015Q3

REPORT INFORMATION
  Report Type: Spontaneous
  Country: US (occurrence: US)
  Receive Date: 20150916
  Receipt Date: 20150916
  Transmission Date: 20151125
  Serious: No
  Sender: FDA-Public Use
  Company Number: US-ELI_LILLY_AND_COMPANY-US200910002145

PATIENT
  Sex: Female

DRUGS (3)
  1. EVISTA [Concomitant]
     Active Substance: RALOXIFENE HYDROCHLORIDE
  2. BENADRYL [Concomitant]
     Active Substance: DIPHENHYDRAMINE HYDROCHLORIDE
     Dosage: 50 MG, 3/D
  3. FORTEO [Suspect]
     Active Substance: TERIPARATIDE
     Dates: start: 200803, end: 20090930

REACTIONS (2)
  - Injection site abscess [Recovering/Resolving]
  - Injection site bruising [Not Recovered/Not Resolved]
